FAERS Safety Report 8810106 (Version 1)
Quarter: 2012Q4

REPORT INFORMATION
  Report Type: 
  Country: US (occurrence: US)
  Receive Date: 20120926
  Receipt Date: 20120926
  Transmission Date: 20130627
  Serious: No
  Sender: FDA-Public Use
  Company Number: US-BAYER-2012-099406

PATIENT
  Age: 76 Year
  Sex: Female
  Weight: 104.31 kg

DRUGS (6)
  1. ALEVE CAPLET/TABLET,MIDOL EXTENDED RELIEF CAPLET [Suspect]
     Indication: BACK PAIN
     Dosage: 1 DF, QD
     Route: 048
     Dates: start: 201206
  2. SIMVASTATIN [Concomitant]
  3. MAXZIDE [Concomitant]
  4. LISINOPRIL [Concomitant]
  5. HYTRIN [Concomitant]
  6. METFORMIN [Concomitant]

REACTIONS (1)
  - Back pain [None]
